FAERS Safety Report 21820852 (Version 1)
Quarter: 2023Q1

REPORT INFORMATION
  Report Type: Report from Study
  Country: US (occurrence: US)
  Receive Date: 20230105
  Receipt Date: 20230105
  Transmission Date: 20230417
  Serious: No
  Sender: FDA-Public Use
  Company Number: US-ABBVIE-4229345

PATIENT
  Sex: Female

DRUGS (1)
  1. HUMIRA [Suspect]
     Active Substance: ADALIMUMAB
     Indication: Rheumatoid arthritis
     Dosage: FORM STRENGTH: 40 MILLIGRAM
     Route: 058

REACTIONS (5)
  - Osteoarthritis [Not Recovered/Not Resolved]
  - Lung disorder [Not Recovered/Not Resolved]
  - Rheumatoid arthritis [Not Recovered/Not Resolved]
  - Peripheral swelling [Unknown]
  - Cyst [Unknown]

NARRATIVE: CASE EVENT DATE: 19850101
